FAERS Safety Report 7035307-5 (Version None)
Quarter: 2010Q4

REPORT INFORMATION
  Report Type: 
  Country: None (occurrence: None)
  Receive Date: 20101008
  Receipt Date: 20100930
  Transmission Date: 20110411
  Serious: Yes (Hospitalization)
  Sender: FDA-Public Use
  Company Number: B0677052A

PATIENT
  Sex: Female

DRUGS (6)
  1. AVANDAMET [Suspect]
     Route: 048
     Dates: start: 20080101, end: 20100113
  2. IRBESARTAN [Concomitant]
     Dosage: 150MG PER DAY
     Route: 048
  3. KARDEGIC [Concomitant]
     Indication: ARTERIOSCLEROSIS OBLITERANS
     Dosage: 75MG PER DAY
     Route: 048
     Dates: start: 20070101
  4. CRESTOR [Concomitant]
     Dosage: 10MG PER DAY
     Route: 048
     Dates: start: 20070101, end: 20100115
  5. VASTAREL [Concomitant]
     Dosage: 35MG TWICE PER DAY
     Route: 048
     Dates: start: 20070101, end: 20100115
  6. LASIX [Concomitant]
     Dosage: 20MG PER DAY
     Route: 048
     Dates: start: 20091101

REACTIONS (2)
  - ACUTE PULMONARY OEDEMA [None]
  - CARDIAC FAILURE [None]
